FAERS Safety Report 4398804-7 (Version None)
Quarter: 2004Q3

REPORT INFORMATION
  Report Type: 
  Country: None (occurrence: None)
  Receive Date: 20040712
  Receipt Date: 20040701
  Transmission Date: 20050211
  Serious: Yes (Hospitalization)
  Sender: FDA-Public Use
  Company Number: 2004-BP-05238RO

PATIENT
  Age: 73 Year
  Sex: Male
  Weight: 75.3 kg

DRUGS (18)
  1. PREDNISONE TAB [Suspect]
     Indication: MANTLE CELL LYMPHOMA
     Dosage: PO
     Route: 048
     Dates: start: 20030130
  2. GENASENSE [Suspect]
     Indication: MANTLE CELL LYMPHOMA
     Dosage: 3 MG/KG/DAY (7 DAY CYCLE EVERY 28 DAYS) IV
     Route: 042
     Dates: start: 20020708, end: 20030522
  3. RITUXIMAB (RITUXIMAB) [Suspect]
     Indication: MANTLE CELL LYMPHOMA
     Dates: start: 20030130
  4. CYCLOPHOSPHAMIDE [Suspect]
     Indication: MANTLE CELL LYMPHOMA
     Dates: start: 20030130
  5. DOXORUBICIN HCL [Suspect]
     Indication: MANTLE CELL LYMPHOMA
     Dates: start: 20030130
  6. VINCRISTINE [Suspect]
     Indication: MANTLE CELL LYMPHOMA
     Dates: start: 20030130
  7. ACETAMINOPHEN [Concomitant]
  8. AMOXICLIIN/POTASSIUM CLAVULANATE (AMOXICILLIN W/CLAVULANATE POTASSIUM) [Concomitant]
  9. AMPICILLIN/SULBACTAM (DUOCID INJECTION) [Concomitant]
  10. ATORVASTATIN CALCIUM [Concomitant]
  11. CIPROFLOXACIN [Concomitant]
  12. DEXAMETHASONE [Concomitant]
  13. DIPHENHYDRAMINE HCL [Concomitant]
  14. EPOETIN ALPHA (EPOETIN ALFA) [Concomitant]
  15. FILGRASTIM (FILGRASTIM) [Concomitant]
  16. GRANISETRON (GRANISETRON) [Concomitant]
  17. LEVOFLOXACIN [Concomitant]
  18. ZOLPIDEM TARTRATE [Concomitant]

REACTIONS (6)
  - CATHETER RELATED INFECTION [None]
  - HAEMOGLOBIN DECREASED [None]
  - LEUKOPENIA [None]
  - PLATELET COUNT DECREASED [None]
  - SINUS DISORDER [None]
  - STAPHYLOCOCCAL BACTERAEMIA [None]
